FAERS Safety Report 7728181-2 (Version None)
Quarter: 2011Q3

REPORT INFORMATION
  Report Type: 
  Country: None (occurrence: None)
  Receive Date: 20110905
  Receipt Date: 20110822
  Transmission Date: 20111222
  Serious: Yes (Other)
  Sender: FDA-Public Use
  Company Number: PHHY2011JP75257

PATIENT
  Age: 61 Year
  Sex: Male

DRUGS (6)
  1. VOGLIBOSE [Concomitant]
     Route: 048
  2. LIVALO [Concomitant]
     Route: 048
  3. ASPIRIN [Concomitant]
     Route: 048
  4. INSULIN [Concomitant]
  5. EXFORGE [Suspect]
     Dosage: 10 DF, UNK
     Route: 048
  6. AMOXAPINE [Concomitant]
     Route: 048

REACTIONS (2)
  - CONFUSIONAL STATE [None]
  - OVERDOSE [None]
